FAERS Safety Report 11068763 (Version 2)
Quarter: 2015Q2

REPORT INFORMATION
  Report Type: Spontaneous
  Country: IT (occurrence: IT)
  Receive Date: 20150427
  Receipt Date: 20150609
  Transmission Date: 20150821
  Serious: Yes (Life-Threatening)
  Sender: FDA-Public Use
  Company Number: IT-TEVA-556872ACC

PATIENT
  Age: 70 Year
  Sex: Female
  Weight: 65 kg

DRUGS (3)
  1. RIBAVIRIN. [Suspect]
     Active Substance: RIBAVIRIN
     Indication: CHRONIC HEPATITIS C
     Dosage: 1 GRAM DAILY;
     Route: 048
  2. RAMIPRIL + HYDROCHLOROTHIAZIDE [Concomitant]
     Active Substance: HYDROCHLOROTHIAZIDE\RAMIPRIL
     Indication: PRODUCT USED FOR UNKNOWN INDICATION
     Route: 048
  3. SOFOSBUVIR [Suspect]
     Active Substance: SOFOSBUVIR
     Indication: CHRONIC HEPATITIS C
     Dosage: 400 MILLIGRAM DAILY;
     Route: 048

REACTIONS (4)
  - Asthmatic crisis [Recovering/Resolving]
  - Infectious pleural effusion [Recovering/Resolving]
  - Acute kidney injury [Recovering/Resolving]
  - Pneumonia bacterial [Recovering/Resolving]

NARRATIVE: CASE EVENT DATE: 20150314
